FAERS Safety Report 4999495-4 (Version None)
Quarter: 2006Q2

REPORT INFORMATION
  Report Type: 
  Country: None (occurrence: None)
  Receive Date: 20060509
  Receipt Date: 20060503
  Transmission Date: 20061013
  Serious: Yes (Other)
  Sender: FDA-Public Use
  Company Number: 145152USA

PATIENT
  Age: 72 Year
  Sex: Female
  Weight: 52.6173 kg

DRUGS (5)
  1. ATENOLOL [Suspect]
     Indication: HYPERTENSION
     Dosage: 25 MILLIGRAM
     Dates: start: 20060131, end: 20060325
  2. SYNTHROID [Concomitant]
  3. DYAZIDE [Concomitant]
  4. MOTRIN [Concomitant]
  5. FIORINAL [Concomitant]

REACTIONS (6)
  - ABDOMINAL PAIN UPPER [None]
  - DIZZINESS [None]
  - HEPATIC ENZYME INCREASED [None]
  - NAUSEA [None]
  - PANCREATIC DISORDER [None]
  - VIRAL INFECTION [None]
